FAERS Safety Report 8851778 (Version 2)
Quarter: 2012Q4

REPORT INFORMATION
  Report Type: 
  Country: US (occurrence: US)
  Receive Date: 20121022
  Receipt Date: 20121115
  Transmission Date: 20130627
  Serious: No
  Sender: FDA-Public Use
  Company Number: US-PFIZER INC-2012262451

PATIENT
  Age: 66 Year
  Sex: Female
  Weight: 56.69 kg

DRUGS (2)
  1. GABAPENTIN [Suspect]
     Indication: NERVE INJURY
     Dosage: 300 mg, 3x/day
     Dates: start: 201204, end: 20121015
  2. ZOLOFT [Concomitant]
     Indication: DEPRESSION
     Dosage: 100 mg, daily

REACTIONS (5)
  - Vision blurred [Unknown]
  - Diarrhoea [Unknown]
  - Flatulence [Unknown]
  - Fatigue [Unknown]
  - Dizziness [Recovered/Resolved]
